FAERS Safety Report 12865233 (Version 1)
Quarter: 2016Q4

REPORT INFORMATION
  Report Type: Spontaneous
  Country: US (occurrence: US)
  Receive Date: 20161020
  Receipt Date: 20161020
  Transmission Date: 20170207
  Serious: No
  Sender: FDA-Public Use
  Company Number: None

PATIENT
  Age: 49 Year
  Sex: Female
  Weight: 63.5 kg

DRUGS (4)
  1. VITAMIN B12 [Concomitant]
     Active Substance: CYANOCOBALAMIN
  2. MULTI VIT [Concomitant]
  3. HYOSCYAMINE SULFATE SL [Suspect]
     Active Substance: HYOSCYAMINE SULFATE
     Indication: ABDOMINAL PAIN
     Dosage: 120 PILLS ?DATES OF USE GIVEN 07/21/2017 - 07/29/2017
     Route: 048
  4. VITAMIN C [Concomitant]
     Active Substance: ASCORBIC ACID

REACTIONS (2)
  - Dizziness [None]
  - Urinary retention [None]

NARRATIVE: CASE EVENT DATE: 20160724
